FAERS Safety Report 9632396 (Version 28)
Quarter: 2016Q2

REPORT INFORMATION
  Report Type: Report from Study
  Country: CA (occurrence: CA)
  Receive Date: 20131018
  Receipt Date: 20160630
  Transmission Date: 20160815
  Serious: Yes (Hospitalization, Other)
  Sender: FDA-Public Use
  Company Number: CA-ROCHE-1285240

PATIENT
  Age: 18 Year
  Sex: Male
  Weight: 82 kg

DRUGS (21)
  1. ACTEMRA [Suspect]
     Active Substance: TOCILIZUMAB
     Route: 042
     Dates: start: 20140918
  2. ACTEMRA [Suspect]
     Active Substance: TOCILIZUMAB
     Indication: STILL^S DISEASE ADULT ONSET
     Route: 042
     Dates: start: 20130808, end: 20151104
  3. ACTEMRA [Suspect]
     Active Substance: TOCILIZUMAB
     Route: 042
     Dates: start: 20140521
  4. NAPROSYN [Suspect]
     Active Substance: NAPROXEN
     Indication: INFLAMMATION
     Route: 065
  5. CESAMET [Concomitant]
     Active Substance: NABILONE
  6. TYLENOL [Concomitant]
     Active Substance: ACETAMINOPHEN
  7. PREDNISONE. [Concomitant]
     Active Substance: PREDNISONE
  8. CORTISONE [Concomitant]
     Active Substance: CORTISONE\HYDROCORTISONE
     Route: 048
  9. ELAVIL [Concomitant]
     Active Substance: AMITRIPTYLINE HYDROCHLORIDE
  10. ACTEMRA [Suspect]
     Active Substance: TOCILIZUMAB
     Route: 042
     Dates: start: 20131107
  11. ACTEMRA [Suspect]
     Active Substance: TOCILIZUMAB
     Indication: STILL^S DISEASE ADULT ONSET
     Route: 058
     Dates: start: 201511
  12. PLAQUENIL [Concomitant]
     Active Substance: HYDROXYCHLOROQUINE SULFATE
  13. CORTISONE [Concomitant]
     Active Substance: CORTISONE\HYDROCORTISONE
     Route: 048
  14. ACTEMRA [Suspect]
     Active Substance: TOCILIZUMAB
     Route: 042
     Dates: start: 20140723
  15. MORPHINE [Concomitant]
     Active Substance: MORPHINE
  16. KINERET [Concomitant]
     Active Substance: ANAKINRA
  17. ACTEMRA [Suspect]
     Active Substance: TOCILIZUMAB
     Route: 042
     Dates: start: 20140820
  18. COLCHICINE. [Concomitant]
     Active Substance: COLCHICINE
  19. PANTOLOC [Concomitant]
     Active Substance: PANTOPRAZOLE SODIUM
  20. METHOTREXATE [Concomitant]
     Active Substance: METHOTREXATE
  21. CORTISONE [Concomitant]
     Active Substance: CORTISONE\HYDROCORTISONE
     Route: 042

REACTIONS (34)
  - Back pain [Unknown]
  - Pain in extremity [Unknown]
  - Feeling hot [Unknown]
  - Wound [Not Recovered/Not Resolved]
  - Heart rate decreased [Unknown]
  - Rash [Not Recovered/Not Resolved]
  - Respiratory rate increased [Unknown]
  - Nausea [Unknown]
  - Hypotension [Unknown]
  - Depression [Not Recovered/Not Resolved]
  - Pain [Recovering/Resolving]
  - Heart rate increased [Unknown]
  - Nephrolithiasis [Not Recovered/Not Resolved]
  - Arthritis [Recovering/Resolving]
  - Weight fluctuation [Unknown]
  - Tendon pain [Unknown]
  - Chills [Unknown]
  - Body temperature decreased [Unknown]
  - Vomiting [Unknown]
  - Drug ineffective [Unknown]
  - Pyrexia [Unknown]
  - Infectious mononucleosis [Unknown]
  - Weight increased [Unknown]
  - Malaise [Unknown]
  - Skin papilloma [Unknown]
  - Rash [Recovering/Resolving]
  - Musculoskeletal chest pain [Unknown]
  - Rib fracture [Unknown]
  - Off label use [Unknown]
  - Fatigue [Unknown]
  - Gastrooesophageal reflux disease [Unknown]
  - Myalgia [Recovering/Resolving]
  - Fall [Unknown]
  - Pain [Not Recovered/Not Resolved]

NARRATIVE: CASE EVENT DATE: 20130808
